FAERS Safety Report 9906745 (Version 1)
Quarter: 2014Q1

REPORT INFORMATION
  Report Type: Spontaneous
  Country: US (occurrence: US)
  Receive Date: 20140218
  Receipt Date: 20140218
  Transmission Date: 20141002
  Serious: Yes (Other)
  Sender: FDA-Public Use
  Company Number: US-ABBVIE-14P-163-1199294-00

PATIENT
  Sex: Male
  Weight: 86.26 kg

DRUGS (16)
  1. HUMIRA [Suspect]
     Indication: ANKYLOSING SPONDYLITIS
     Dates: start: 2011, end: 2011
  2. HUMIRA [Suspect]
     Indication: CROHN^S DISEASE
     Dosage: TWO WEEKS AFTER 160 MG DOSE
     Dates: start: 2011, end: 2011
  3. HUMIRA [Suspect]
     Dosage: FOUR WEEKS AFTER 80 MG DOSE
     Dates: start: 2011, end: 2011
  4. HUMIRA [Suspect]
     Dates: start: 2011
  5. ACCUPRIL [Concomitant]
     Indication: HYPERTENSION
  6. HYDROCHLOROTHIAZIDE [Concomitant]
     Indication: HYPERTENSION
  7. K-DUR [Concomitant]
     Indication: ELECTROLYTE SUBSTITUTION THERAPY
  8. VITAMIN B12 [Concomitant]
     Indication: VITAMIN SUPPLEMENTATION
  9. VITAMIN B12 [Concomitant]
     Indication: CROHN^S DISEASE
  10. DRISDOL [Concomitant]
     Indication: VITAMIN SUPPLEMENTATION
  11. DRISDOL [Concomitant]
     Indication: BONE DISORDER
  12. TOPROL [Concomitant]
     Indication: HYPERTENSION
  13. ALLEGRA D [Concomitant]
     Indication: HYPERSENSITIVITY
  14. ALLEGRA D [Concomitant]
     Indication: UPPER RESPIRATORY TRACT CONGESTION
  15. AMLODIPINE BESYLATE [Concomitant]
     Indication: HYPERTENSION
  16. ASACOL HD [Concomitant]
     Indication: CROHN^S DISEASE

REACTIONS (10)
  - Melanocytic naevus [Recovered/Resolved]
  - Basal cell carcinoma [Not Recovered/Not Resolved]
  - Melanocytic naevus [Not Recovered/Not Resolved]
  - Skin lesion [Not Recovered/Not Resolved]
  - Rash papular [Not Recovered/Not Resolved]
  - Dry skin [Not Recovered/Not Resolved]
  - Erythema [Not Recovered/Not Resolved]
  - Dry skin [Not Recovered/Not Resolved]
  - Rash papular [Not Recovered/Not Resolved]
  - Pruritus [Not Recovered/Not Resolved]
